FAERS Safety Report 16053903 (Version 5)
Quarter: 2019Q4

REPORT INFORMATION
  Report Type: Spontaneous
  Country: US (occurrence: US)
  Receive Date: 20190308
  Receipt Date: 20191001
  Transmission Date: 20200122
  Serious: Yes (Other)
  Sender: FDA-Public Use
  Company Number: US-ASTRAZENECA-2018SF33348

PATIENT
  Age: 48 Year
  Sex: Male
  Weight: 117.9 kg

DRUGS (32)
  1. NEXIUM [Suspect]
     Active Substance: ESOMEPRAZOLE MAGNESIUM
     Indication: GASTROOESOPHAGEAL REFLUX DISEASE
     Route: 048
  2. ASPIRIN. [Concomitant]
     Active Substance: ASPIRIN
  3. IPRATROPIUM [Concomitant]
     Active Substance: IPRATROPIUM
  4. ZOLPIDEM [Concomitant]
     Active Substance: ZOLPIDEM TARTRATE
  5. PREVACID 24 HR [Suspect]
     Active Substance: LANSOPRAZOLE
     Indication: GASTROOESOPHAGEAL REFLUX DISEASE
     Route: 065
     Dates: start: 19950510, end: 20171231
  6. METOLAZONE. [Concomitant]
     Active Substance: METOLAZONE
  7. FAMOTIDINE. [Concomitant]
     Active Substance: FAMOTIDINE
  8. METOCLOPRAMIDE. [Concomitant]
     Active Substance: METOCLOPRAMIDE
  9. PANTOPRAZOLE [Concomitant]
     Active Substance: PANTOPRAZOLE
  10. SODIUM CHLORIDE. [Concomitant]
     Active Substance: SODIUM CHLORIDE
  11. ALBUTEROL. [Concomitant]
     Active Substance: ALBUTEROL
  12. ONDANSETRON [Concomitant]
     Active Substance: ONDANSETRON
  13. POLYETHYLENE GLYCOL [Concomitant]
     Active Substance: POLYETHYLENE GLYCOLS
  14. NALOXONE [Concomitant]
     Active Substance: NALOXONE
  15. HYDRALAZINE [Concomitant]
     Active Substance: HYDRALAZINE HYDROCHLORIDE
  16. MORPHINE [Concomitant]
     Active Substance: MORPHINE
  17. FUROSEMIDE. [Concomitant]
     Active Substance: FUROSEMIDE
  18. ROSUVASTATIN. [Concomitant]
     Active Substance: ROSUVASTATIN
  19. BUPROPION. [Concomitant]
     Active Substance: BUPROPION
  20. CARVEDILOL. [Concomitant]
     Active Substance: CARVEDILOL
  21. ONDANSETRON [Concomitant]
     Active Substance: ONDANSETRON
  22. TEMAZEPAM. [Concomitant]
     Active Substance: TEMAZEPAM
  23. PREVACID [Suspect]
     Active Substance: LANSOPRAZOLE
     Indication: GASTROOESOPHAGEAL REFLUX DISEASE
     Route: 065
     Dates: start: 19950510, end: 20171231
  24. GABAPENTIN. [Concomitant]
     Active Substance: GABAPENTIN
  25. RIVAROXABAN [Concomitant]
     Active Substance: RIVAROXABAN
  26. INSULIN [Concomitant]
     Active Substance: INSULIN NOS
  27. NEXIUM 24HR [Suspect]
     Active Substance: ESOMEPRAZOLE MAGNESIUM
     Indication: GASTROOESOPHAGEAL REFLUX DISEASE
     Route: 048
     Dates: start: 20010220, end: 20171231
  28. BUPROPION. [Concomitant]
     Active Substance: BUPROPION
  29. CARVEDILOL. [Concomitant]
     Active Substance: CARVEDILOL
  30. HYDRALAZINE [Concomitant]
     Active Substance: HYDRALAZINE HYDROCHLORIDE
  31. PRILOSEC [Suspect]
     Active Substance: OMEPRAZOLE MAGNESIUM
     Route: 048
  32. AMIODARONE [Concomitant]
     Active Substance: AMIODARONE

REACTIONS (5)
  - Chronic kidney disease [Not Recovered/Not Resolved]
  - Nephropathy [Unknown]
  - Acute kidney injury [Not Recovered/Not Resolved]
  - End stage renal disease [Unknown]
  - Renal failure [Unknown]

NARRATIVE: CASE EVENT DATE: 2006
